FAERS Safety Report 4597405-5 (Version None)
Quarter: 2005Q1

REPORT INFORMATION
  Report Type: 
  Country: None (occurrence: None)
  Receive Date: 20050303
  Receipt Date: 20010517
  Transmission Date: 20050727
  Serious: Yes (Hospitalization, Other)
  Sender: FDA-Public Use
  Company Number: CZ-NOVOPROD-209086

PATIENT
  Age: 12 Year
  Sex: Female
  Weight: 38 kg

DRUGS (6)
  1. NORDITROPIN SIMPLEXX [Suspect]
     Indication: GROWTH HORMONE DEFICIENCY
     Route: 058
     Dates: start: 20000301, end: 20010509
  2. NORDITROPIN SIMPLEXX [Suspect]
     Route: 058
     Dates: start: 20010510
  3. NORDITROPIN SIMPLEXX [Suspect]
     Dosage: 1 MG, QD
     Route: 058
     Dates: start: 20010530
  4. DESMOPRESSIN [Concomitant]
     Route: 030
     Dates: start: 19991213
  5. THYROXIN [Concomitant]
     Route: 048
     Dates: start: 19991213
  6. HYDROCORTISON [Concomitant]
     Route: 048
     Dates: start: 19991213

REACTIONS (2)
  - CRANIOPHARYNGIOMA [None]
  - RECURRENT CANCER [None]
